FAERS Safety Report 10986034 (Version 2)
Quarter: 2015Q2

REPORT INFORMATION
  Report Type: Report from Study
  Country: BR (occurrence: BR)
  Receive Date: 20150404
  Receipt Date: 20150422
  Transmission Date: 20150821
  Serious: Yes (Disabling, Other)
  Sender: FDA-Public Use
  Company Number: PHHY2015BR040319

PATIENT
  Sex: Male
  Weight: 75 kg

DRUGS (1)
  1. ACLASTA [Suspect]
     Active Substance: ZOLEDRONIC ACID
     Indication: OSTEOPOROSIS
     Dosage: 5 MG, 1 AMPOULE
     Route: 042
     Dates: start: 2014

REACTIONS (3)
  - Gastrointestinal haemorrhage [Unknown]
  - Abasia [Not Recovered/Not Resolved]
  - Muscle rigidity [Not Recovered/Not Resolved]
